FAERS Safety Report 16237467 (Version 2)
Quarter: 2019Q2

REPORT INFORMATION
  Report Type: Report from Study
  Country: IT (occurrence: IT)
  Receive Date: 20190425
  Receipt Date: 20190429
  Transmission Date: 20190711
  Serious: Yes (Hospitalization)
  Sender: FDA-Public Use
  Company Number: IT-MYLANLABS-2019M1038253

PATIENT
  Age: 75 Year
  Sex: Male

DRUGS (8)
  1. BRUFEN [Suspect]
     Active Substance: IBUPROFEN
     Indication: ANALGESIC THERAPY
     Dosage: 600 MILLIGRAM, ASNECESSARY
     Route: 048
     Dates: start: 20180901, end: 20181101
  2. OMOLIN [Concomitant]
     Dosage: UNK
  3. OLPREZIDE [Concomitant]
     Active Substance: HYDROCHLOROTHIAZIDE\OLMESARTAN MEDOXOMIL
     Dosage: UNK
  4. TOVANIRA [Concomitant]
     Dosage: UNK
  5. SPIRIVA [Concomitant]
     Active Substance: TIOTROPIUM BROMIDE MONOHYDRATE
     Dosage: UNK
  6. FELDENE [Interacting]
     Active Substance: PIROXICAM
     Indication: ANALGESIC THERAPY
     Dosage: 20 MILLIGRAM, AS NECESSARY
     Route: 048
     Dates: start: 20180901, end: 20181101
  7. PROCORALAN [Concomitant]
     Active Substance: IVABRADINE
     Dosage: UNK
  8. CARDIOASPIRIN [Interacting]
     Active Substance: ASPIRIN
     Indication: MYOCARDIAL ISCHAEMIA
     Dosage: 100 MILLIGRAM, QD
     Route: 048
     Dates: start: 20170101, end: 20181101

REACTIONS (4)
  - Drug interaction [Recovering/Resolving]
  - Fall [Recovering/Resolving]
  - Subdural haemorrhage [Recovering/Resolving]
  - Injury [Recovering/Resolving]

NARRATIVE: CASE EVENT DATE: 20181101
